FAERS Safety Report 4708981-3 (Version None)
Quarter: 2005Q3

REPORT INFORMATION
  Report Type: 
  Country: None (occurrence: None)
  Receive Date: 20050707
  Receipt Date: 20050627
  Transmission Date: 20060218
  Serious: Yes (Hospitalization, Other)
  Sender: FDA-Public Use
  Company Number: 2005064818

PATIENT
  Age: 82 Year
  Sex: Male

DRUGS (4)
  1. CELEBREX [Suspect]
     Indication: ARTHRITIS
     Dosage: 200 MG (200 MG 1 IN 1 D), ORAL
     Route: 048
     Dates: start: 20050408, end: 20050420
  2. BEXTRA [Suspect]
     Indication: ILL-DEFINED DISORDER
  3. HYTRIN [Concomitant]
  4. PROSCAR [Concomitant]

REACTIONS (1)
  - ACUTE MYOCARDIAL INFARCTION [None]
